FAERS Safety Report 24871751 (Version 3)
Quarter: 2025Q1

REPORT INFORMATION
  Report Type: Spontaneous
  Country: CA (occurrence: CA)
  Receive Date: 20250122
  Receipt Date: 20250320
  Transmission Date: 20250408
  Serious: Yes (Hospitalization, Other)
  Sender: CELLTRION
  Company Number: CA-CELLTRION INC.-2025CA001458

PATIENT

DRUGS (1)
  1. YUFLYMA [Suspect]
     Active Substance: ADALIMUMAB-AATY
     Indication: Colitis ulcerative
     Dosage: MAINTENANCE - 40 MG EVERY WEEK
     Route: 058
     Dates: start: 20231126

REACTIONS (3)
  - Colitis ulcerative [Unknown]
  - Maternal exposure during pregnancy [Unknown]
  - Treatment failure [Unknown]

NARRATIVE: CASE EVENT DATE: 20241201
